FAERS Safety Report 8958272 (Version 2)
Quarter: 2013Q1

REPORT INFORMATION
  Report Type: Spontaneous
  Country: DE (occurrence: DE)
  Receive Date: 20121211
  Receipt Date: 20130204
  Transmission Date: 20140127
  Serious: Yes (Death, Hospitalization)
  Sender: FDA-Public Use
  Company Number: DE-ELI_LILLY_AND_COMPANY-DE201211009347

PATIENT
  Age: 75 Year
  Sex: Female
  Weight: 50 kg

DRUGS (7)
  1. FORSTEO [Suspect]
     Indication: OSTEOPOROSIS
     Dosage: UNK, QD
     Route: 058
     Dates: start: 20120628, end: 20120918
  2. CORTISON [Concomitant]
     Dosage: 2.5 MG, QD
  3. MARCUMAR [Concomitant]
  4. FUROSEMIDE [Concomitant]
  5. SPIROBETA [Concomitant]
  6. CALCIUM [Concomitant]
  7. VITAMIN D [Concomitant]

REACTIONS (6)
  - Cardiopulmonary failure [Fatal]
  - Cerebrovascular accident [Unknown]
  - Arrhythmia [Unknown]
  - Cardiac failure [Unknown]
  - Pneumonia [Unknown]
  - Depression [Unknown]
